FAERS Safety Report 4898103-0 (Version None)
Quarter: 2006Q1

REPORT INFORMATION
  Report Type: 
  Country: None (occurrence: None)
  Receive Date: 20060127
  Receipt Date: 20060109
  Transmission Date: 20060701
  Serious: Yes (Hospitalization)
  Sender: FDA-Public Use
  Company Number: TRP_0684_2006

PATIENT
  Age: 55 Year
  Sex: Female
  Weight: 66.6788 kg

DRUGS (4)
  1. RIBASPHERE [Suspect]
     Indication: HEPATITIS C
     Dosage: DF PO
     Route: 048
     Dates: start: 20051007, end: 20051129
  2. PEG-INTRON [Suspect]
     Indication: HEPATITIS C
     Dosage: DF, SC
     Route: 058
     Dates: start: 20051007, end: 20051129
  3. HYDROCHLOROTHIAZIDE [Concomitant]
  4. LOTREL [Concomitant]

REACTIONS (1)
  - ANAEMIA [None]
